FAERS Safety Report 5061964-9 (Version None)
Quarter: 2006Q3

REPORT INFORMATION
  Report Type: 
  Country: None (occurrence: None)
  Receive Date: 20060721
  Receipt Date: 20060711
  Transmission Date: 20061208
  Serious: Yes (Other)
  Sender: FDA-Public Use
  Company Number: HQWYE196730AUG05

PATIENT
  Age: 53 Year
  Sex: Female

DRUGS (1)
  1. PREMPRO [Suspect]

REACTIONS (5)
  - BREAST CANCER METASTATIC [None]
  - METASTASES TO LYMPH NODES [None]
  - NUCLEAR MAGNETIC RESONANCE IMAGING ABNORMAL [None]
  - OESTROGEN RECEPTOR ASSAY POSITIVE [None]
  - PROGESTERONE RECEPTOR ASSAY POSITIVE [None]
